FAERS Safety Report 6551912-4 (Version None)
Quarter: 2010Q1

REPORT INFORMATION
  Report Type: 
  Country: None (occurrence: None)
  Receive Date: 20100126
  Receipt Date: 20100114
  Transmission Date: 20100710
  Serious: Yes (Hospitalization, Other)
  Sender: FDA-Public Use
  Company Number: US-ELI_LILLY_AND_COMPANY-US201001003058

PATIENT
  Age: 48 Year
  Sex: Female

DRUGS (2)
  1. SYMBYAX [Suspect]
     Dosage: 1 D/F, UNK
     Dates: start: 20090101
  2. SYMBYAX [Suspect]
     Dosage: 1 D/F, DAILY (1/D)
     Dates: start: 20100104

REACTIONS (2)
  - CONFUSIONAL STATE [None]
  - ROAD TRAFFIC ACCIDENT [None]
